FAERS Safety Report 4860739-0 (Version None)
Quarter: 2005Q4

REPORT INFORMATION
  Report Type: 
  Country: None (occurrence: None)
  Receive Date: 20051216
  Receipt Date: 20051216
  Transmission Date: 20060501
  Serious: Yes (Other)
  Sender: FDA-Public Use
  Company Number: None

PATIENT
  Sex: Male
  Weight: 71.8 kg

DRUGS (5)
  1. ETOPOSIDE [Suspect]
     Indication: ACUTE LYMPHOCYTIC LEUKAEMIA
     Dosage: SEE IMAGE
     Route: 042
     Dates: start: 20050401
  2. ALLOGINIC BONE MARROW CELLS [Suspect]
     Dosage: SEE IMAGE
     Route: 042
     Dates: start: 20050401
  3. GM-CSF [Suspect]
     Dosage: SEE IMAGE
     Route: 058
     Dates: start: 20050401
  4. ALFA 2 INTERFERON [Suspect]
     Dosage: SEE IMAGE
     Route: 058
     Dates: start: 20050401
  5. BODY IRRADIATION [Suspect]
     Dosage: SEE IMAGE
     Dates: start: 20050401

REACTIONS (3)
  - HYPOXIA [None]
  - PAIN [None]
  - PERICARDIAL EFFUSION [None]
